FAERS Safety Report 24015642 (Version 1)
Quarter: 2024Q2

REPORT INFORMATION
  Report Type: Spontaneous
  Country: US (occurrence: US)
  Receive Date: 20240626
  Receipt Date: 20240626
  Transmission Date: 20240716
  Serious: No
  Sender: FDA-Public Use
  Company Number: US-TPU-TPU-2024-00100

PATIENT
  Age: 78 Year
  Weight: 69.85 kg

DRUGS (11)
  1. LIDOCAINE [Suspect]
     Active Substance: LIDOCAINE
     Indication: Fibromyalgia
  2. LIDOCAINE [Suspect]
     Active Substance: LIDOCAINE
     Indication: Back pain
  3. BUPRENORPHINE [Concomitant]
     Active Substance: BUPRENORPHINE\BUPRENORPHINE HYDROCHLORIDE
  4. GABAPENTIN [Concomitant]
     Active Substance: GABAPENTIN
  5. DULOXETINE [Concomitant]
     Active Substance: DULOXETINE
  6. ASPIRIN [Concomitant]
     Active Substance: ASPIRIN
  7. FUROSEMIDE [Concomitant]
     Active Substance: FUROSEMIDE
  8. NP THYROID [Concomitant]
     Active Substance: LEVOTHYROXINE\LIOTHYRONINE
  9. AMLODIPINE BESYLATE [Concomitant]
     Active Substance: AMLODIPINE BESYLATE
  10. CLONIDINE [Concomitant]
     Active Substance: CLONIDINE
  11. Praluent Ten [Concomitant]

REACTIONS (1)
  - Product dose omission issue [Unknown]

NARRATIVE: CASE EVENT DATE: 20230101
